FAERS Safety Report 10240637 (Version 1)
Quarter: 2014Q2

REPORT INFORMATION
  Report Type: Other
  Country: GB (occurrence: GB)
  Receive Date: 20140617
  Receipt Date: 20140617
  Transmission Date: 20141212
  Serious: Yes (Disabling)
  Sender: FDA-Public Use
  Company Number: GB-LUPIN PHARMACEUTICALS INC.-E2B_00002146

PATIENT
  Age: 32 Year
  Sex: Female
  Weight: 59.41 kg

DRUGS (2)
  1. SERTRALINE [Suspect]
     Indication: GENERALISED ANXIETY DISORDER
     Route: 048
  2. SERTRALINE [Suspect]
     Route: 048

REACTIONS (3)
  - Apathy [Recovered/Resolved]
  - Decreased interest [Recovered/Resolved]
  - Abnormal behaviour [Recovered/Resolved]
